FAERS Safety Report 17816764 (Version 1)
Quarter: 2020Q2

REPORT INFORMATION
  Report Type: Spontaneous
  Country: GB (occurrence: GB)
  Receive Date: 20200522
  Receipt Date: 20200522
  Transmission Date: 20200714
  Serious: Yes (Other)
  Sender: FDA-Public Use
  Company Number: GB-SAMSUNG BIOEPIS-SB-2020-17463

PATIENT
  Sex: Female

DRUGS (1)
  1. BENEPALI [Suspect]
     Active Substance: ETANERCEPT
     Indication: RHEUMATOID ARTHRITIS
     Route: 058

REACTIONS (7)
  - Oropharyngeal pain [Unknown]
  - Pyrexia [Unknown]
  - Exposure to communicable disease [Unknown]
  - Deafness unilateral [Unknown]
  - Influenza [Unknown]
  - Cough [Unknown]
  - Nasopharyngitis [Unknown]
